FAERS Safety Report 22262419 (Version 2)
Quarter: 2025Q2

REPORT INFORMATION
  Report Type: Spontaneous
  Country: IT (occurrence: IT)
  Receive Date: 20230428
  Receipt Date: 20250521
  Transmission Date: 20250717
  Serious: Yes (Death, Other)
  Sender: AUROBINDO
  Company Number: IT-Blueprint Medicines Corporation-LT-IT-2023-000602

PATIENT
  Age: 45 Year
  Sex: Female

DRUGS (6)
  1. OXYCODONE [Suspect]
     Active Substance: OXYCODONE
     Indication: Pain
     Route: 065
  2. AVAPRITINIB [Interacting]
     Active Substance: AVAPRITINIB
     Indication: Malignant mast cell neoplasm
     Dosage: 200 MILLIGRAM, ONCE A DAY
     Route: 065
     Dates: start: 202003
  3. AVAPRITINIB [Interacting]
     Active Substance: AVAPRITINIB
     Dosage: 300 MILLIGRAM, ONCE A DAY
     Route: 065
     Dates: start: 202103
  4. TAPENTADOL [Suspect]
     Active Substance: TAPENTADOL
     Indication: Pain
     Route: 065
  5. CLADRIBINE [Concomitant]
     Active Substance: CLADRIBINE
     Indication: Mastocytic leukaemia
     Route: 065
  6. FENTANYL [Interacting]
     Active Substance: FENTANYL
     Indication: Pain
     Route: 065

REACTIONS (8)
  - Disease progression [Fatal]
  - Leukopenia [Unknown]
  - Nausea [Unknown]
  - Symptom recurrence [Unknown]
  - Pain in extremity [Unknown]
  - Confusional state [Unknown]
  - Arthralgia [Unknown]
  - Off label use [Unknown]

NARRATIVE: CASE EVENT DATE: 20210301
